FAERS Safety Report 7939785-6 (Version None)
Quarter: 2011Q4

REPORT INFORMATION
  Report Type: 
  Country: None (occurrence: None)
  Receive Date: 20111125
  Receipt Date: 20111122
  Transmission Date: 20120403
  Serious: Yes (Death, Life-Threatening, Hospitalization)
  Sender: FDA-Public Use
  Company Number: PHHY2011IL098985

PATIENT
  Sex: Female

DRUGS (2)
  1. SANDOSTATIN LAR [Suspect]
     Dosage: 30 MG EVERY 28 DAYS
     Dates: start: 20111108
  2. SANDOSTATIN LAR [Suspect]
     Indication: CARCINOID TUMOUR
     Dosage: 30 MG, EVERY 28 DAYS
     Dates: start: 20110718

REACTIONS (8)
  - NEOPLASM MALIGNANT [None]
  - HEARING IMPAIRED [None]
  - ANAEMIA [None]
  - CEREBRAL HAEMORRHAGE [None]
  - THROMBOCYTOPENIA [None]
  - FALL [None]
  - HAEMOGLOBIN DECREASED [None]
  - VISUAL IMPAIRMENT [None]
